FAERS Safety Report 10076682 (Version 1)
Quarter: 2014Q2

REPORT INFORMATION
  Report Type: Spontaneous
  Country: AR (occurrence: AR)
  Receive Date: 20140414
  Receipt Date: 20140414
  Transmission Date: 20141212
  Serious: Yes (Hospitalization, Other)
  Sender: FDA-Public Use
  Company Number: AR-AMGEN INC.-ARGSP2014026272

PATIENT
  Age: 5 Year
  Sex: Female

DRUGS (1)
  1. ENBREL [Suspect]
     Indication: JUVENILE IDIOPATHIC ARTHRITIS
     Dosage: 0.63 MG, WEEKLY
     Route: 065
     Dates: start: 20110201

REACTIONS (7)
  - Varicella zoster pneumonia [Recovered/Resolved]
  - Lung disorder [Not Recovered/Not Resolved]
  - Body temperature increased [Not Recovered/Not Resolved]
  - Red blood cell count increased [Not Recovered/Not Resolved]
  - Pneumonia [Recovered/Resolved]
  - Pleural infection [Not Recovered/Not Resolved]
  - Urinary tract infection [Recovered/Resolved]
